FAERS Safety Report 17788401 (Version 1)
Quarter: 2020Q2

REPORT INFORMATION
  Report Type: Report from Study
  Country: CO (occurrence: CO)
  Receive Date: 20200514
  Receipt Date: 20200514
  Transmission Date: 20200714
  Serious: Yes (Hospitalization)
  Sender: FDA-Public Use
  Company Number: CO-BRISTOL-MYERS SQUIBB COMPANY-BMS-2020-017010

PATIENT
  Age: 54 Year
  Sex: Female

DRUGS (2)
  1. NIVOLUMAB [Suspect]
     Active Substance: NIVOLUMAB
     Indication: RENAL CANCER
     Dosage: 150 MILLIGRAM, Q3WK
     Route: 042
     Dates: start: 20200127, end: 20200415
  2. YERVOY [Suspect]
     Active Substance: IPILIMUMAB
     Indication: PRODUCT USED FOR UNKNOWN INDICATION
     Dosage: UNK (YERVOY SINJ 50MG), BIWEEKLY
     Route: 065

REACTIONS (3)
  - Pruritus [Not Recovered/Not Resolved]
  - Blood creatinine increased [Recovering/Resolving]
  - Blood creatine abnormal [Recovering/Resolving]

NARRATIVE: CASE EVENT DATE: 20200127
